FAERS Safety Report 7616810-3 (Version None)
Quarter: 2011Q3

REPORT INFORMATION
  Report Type: 
  Country: None (occurrence: None)
  Receive Date: 20110718
  Receipt Date: 20110707
  Transmission Date: 20111222
  Serious: No
  Sender: FDA-Public Use
  Company Number: US-BIOGENIDEC-2010BI037095

PATIENT
  Age: 57 Year
  Sex: Female

DRUGS (2)
  1. TYSABRI [Suspect]
     Indication: MULTIPLE SCLEROSIS
     Route: 042
     Dates: start: 20090604, end: 20091022
  2. TYSABRI [Suspect]
     Route: 042
     Dates: start: 20100730, end: 20100924

REACTIONS (9)
  - FUNGAL INFECTION [None]
  - ASTHENIA [None]
  - GAIT DISTURBANCE [None]
  - MUSCLE SPASTICITY [None]
  - URINARY TRACT INFECTION [None]
  - DYSSTASIA [None]
  - MUSCLE SPASMS [None]
  - NOCTURIA [None]
  - COORDINATION ABNORMAL [None]
